FAERS Safety Report 7797404-6 (Version None)
Quarter: 2011Q4

REPORT INFORMATION
  Report Type: 
  Country: None (occurrence: None)
  Receive Date: 20111005
  Receipt Date: 20110928
  Transmission Date: 20120403
  Serious: Yes (Other)
  Sender: FDA-Public Use
  Company Number: GB-TEVA-302866ISR

PATIENT
  Age: 43 Year

DRUGS (2)
  1. VALPROIC ACID [Suspect]
     Indication: PRODUCT USED FOR UNKNOWN INDICATION
     Route: 065
  2. IBUPROFEN [Suspect]
     Indication: PRODUCT USED FOR UNKNOWN INDICATION
     Route: 065

REACTIONS (10)
  - HYPOCALCAEMIA [None]
  - HYPERNATRAEMIA [None]
  - OVERDOSE [None]
  - ANION GAP INCREASED [None]
  - BLOOD GLUCOSE DECREASED [None]
  - THROMBOCYTOPENIA [None]
  - ALANINE AMINOTRANSFERASE INCREASED [None]
  - BLOOD OSMOLARITY INCREASED [None]
  - HYPERAMMONAEMIA [None]
  - RESPIRATORY ALKALOSIS [None]
